FAERS Safety Report 8522394-8 (Version None)
Quarter: 2012Q3

REPORT INFORMATION
  Report Type: 
  Country: None (occurrence: None)
  Receive Date: 20120706
  Receipt Date: 20120627
  Transmission Date: 20120928
  Serious: No
  Sender: FDA-Public Use
  Company Number: 2012SP036628

PATIENT
  Age: 35 Year
  Sex: Female

DRUGS (1)
  1. KEIMAX (CEFTIBUTEN / 01166201/ ) [Suspect]
     Indication: BRONCHIAL DISORDER
     Dosage: 400 MG;CAP;PO
     Route: 048
     Dates: start: 20120601

REACTIONS (2)
  - DISEASE RECURRENCE [None]
  - NO THERAPEUTIC RESPONSE [None]
